FAERS Safety Report 8149459-7 (Version None)
Quarter: 2012Q1

REPORT INFORMATION
  Report Type: 
  Country: None (occurrence: None)
  Receive Date: 20120218
  Receipt Date: 20111018
  Transmission Date: 20120608
  Serious: No
  Sender: FDA-Public Use
  Company Number: US-ALLERGAN-1113744US

PATIENT
  Age: 61 Year
  Sex: Female

DRUGS (1)
  1. BOTULINUM TOXIN TYPE A [Suspect]
     Indication: PAIN
     Dosage: UNK
     Route: 030
     Dates: start: 20110804, end: 20110804

REACTIONS (2)
  - INFLUENZA LIKE ILLNESS [None]
  - EYE SWELLING [None]
